FAERS Safety Report 9378491 (Version 1)
Quarter: 2013Q3

REPORT INFORMATION
  Report Type: Spontaneous
  Country: US (occurrence: US)
  Receive Date: 20130702
  Receipt Date: 20130702
  Transmission Date: 20140515
  Serious: Yes (Hospitalization, Other)
  Sender: FDA-Public Use
  Company Number: US-AMGEN-USASP2013045946

PATIENT
  Age: 34 Year
  Sex: Male
  Weight: 52.2 kg

DRUGS (3)
  1. EPOGEN [Suspect]
     Indication: RENAL FAILURE CHRONIC
     Dosage: UNK
     Route: 065
  2. PREDNISONE [Concomitant]
     Dosage: UNK
  3. OMONTYS [Concomitant]
     Dosage: UNK

REACTIONS (6)
  - Colonoscopy [Unknown]
  - Proctalgia [Unknown]
  - Anaemia [Unknown]
  - Therapeutic response decreased [Unknown]
  - Liver disorder [Unknown]
  - White blood cell count decreased [Unknown]
